FAERS Safety Report 23813120 (Version 2)
Quarter: 2025Q3

REPORT INFORMATION
  Report Type: Spontaneous
  Country: US (occurrence: US)
  Receive Date: 20240503
  Receipt Date: 20250730
  Transmission Date: 20251021
  Serious: Yes (Hospitalization, Other)
  Sender: AMNEAL
  Company Number: US-AMNEAL PHARMACEUTICALS-2023-AMRX-03720

PATIENT
  Age: 0 Year
  Sex: Male
  Weight: 11.429 kg

DRUGS (13)
  1. VIGABATRIN [Suspect]
     Active Substance: VIGABATRIN
     Indication: Seizure
     Route: 048
     Dates: start: 20231017
  2. VIGABATRIN [Suspect]
     Active Substance: VIGABATRIN
     Indication: Infantile spasms
     Route: 048
  3. VIGABATRIN [Suspect]
     Active Substance: VIGABATRIN
     Route: 065
  4. VIGABATRIN [Suspect]
     Active Substance: VIGABATRIN
     Route: 065
  5. VIGABATRIN [Suspect]
     Active Substance: VIGABATRIN
     Dosage: 800 MILLIGRAM, 2 /DAY (MIX 2 PACKETS IN 20 ML OF COLD OR ROOM TEMPERATURE WATER AND DRAW UP AND GIVE
     Route: 065
  6. FAMOTIDINE [Concomitant]
     Active Substance: FAMOTIDINE
     Indication: Product used for unknown indication
     Route: 065
     Dates: start: 20231018
  7. VIMPAT [Concomitant]
     Active Substance: LACOSAMIDE
     Indication: Product used for unknown indication
     Route: 065
  8. VIMPAT [Concomitant]
     Active Substance: LACOSAMIDE
     Dates: start: 20231018
  9. ZYRTEC [Concomitant]
     Active Substance: CETIRIZINE HYDROCHLORIDE
     Indication: Product used for unknown indication
     Route: 048
     Dates: start: 20231229
  10. VITAMINS [Concomitant]
     Active Substance: VITAMINS
     Indication: Product used for unknown indication
     Route: 065
  11. MIDAZOLAM HYDROCHLORIDE [Concomitant]
     Active Substance: MIDAZOLAM HYDROCHLORIDE
     Indication: Product used for unknown indication
     Route: 065
  12. CHILDRENS ZYRTEC [Concomitant]
     Active Substance: CETIRIZINE HYDROCHLORIDE
     Indication: Product used for unknown indication
     Route: 065
  13. DIAZEPAM [Concomitant]
     Active Substance: DIAZEPAM
     Indication: Product used for unknown indication
     Route: 065

REACTIONS (7)
  - Condition aggravated [Recovered/Resolved]
  - Vomiting projectile [Recovered/Resolved]
  - Seizure [Recovered/Resolved]
  - COVID-19 [Unknown]
  - Muscle spasms [Not Recovered/Not Resolved]
  - Sinusitis [Recovering/Resolving]
  - Product dose omission issue [Unknown]

NARRATIVE: CASE EVENT DATE: 20231014
